FAERS Safety Report 4830237-9 (Version None)
Quarter: 2005Q4

REPORT INFORMATION
  Report Type: 
  Country: None (occurrence: None)
  Receive Date: 20051117
  Receipt Date: 20051012
  Transmission Date: 20060501
  Serious: Yes (Disabling)
  Sender: FDA-Public Use
  Company Number: US-GLAXOSMITHKLINE-A0577998A

PATIENT
  Age: 53 Year
  Sex: Female
  Weight: 81.8 kg

DRUGS (9)
  1. PAROXETINE HCL [Suspect]
     Indication: DEPRESSION
     Dosage: 20MG PER DAY
     Route: 048
     Dates: start: 20020101
  2. ALLEGRA [Concomitant]
  3. ALLEGRA [Concomitant]
  4. PROTONIX [Concomitant]
  5. CALCIUM GLUCONATE [Concomitant]
  6. MULTI-VITAMIN [Concomitant]
  7. VITAMIN E [Concomitant]
  8. MAGNESIUM [Concomitant]
  9. POTASSIUM [Concomitant]

REACTIONS (4)
  - DEPRESSED MOOD [None]
  - DRUG INEFFECTIVE [None]
  - IRRITABILITY [None]
  - TEARFULNESS [None]
